FAERS Safety Report 18076181 (Version 1)
Quarter: 2020Q3

REPORT INFORMATION
  Report Type: Spontaneous
  Country: US (occurrence: US)
  Receive Date: 20200727
  Receipt Date: 20200727
  Transmission Date: 20201103
  Serious: No
  Sender: FDA-Public Use
  Company Number: US-ABBVIE-20K-163-3401113-00

PATIENT
  Sex: Female

DRUGS (3)
  1. LORTAB [Suspect]
     Active Substance: ACETAMINOPHEN\HYDROCODONE BITARTRATE
     Indication: PRODUCT USED FOR UNKNOWN INDICATION
     Route: 065
  2. SYNTHROID [Suspect]
     Active Substance: LEVOTHYROXINE SODIUM
     Indication: PRODUCT USED FOR UNKNOWN INDICATION
     Route: 048
  3. LEVOTHYROXINE. [Suspect]
     Active Substance: LEVOTHYROXINE
     Indication: PRODUCT USED FOR UNKNOWN INDICATION
     Route: 065

REACTIONS (17)
  - Crying [Not Recovered/Not Resolved]
  - Ocular discomfort [Unknown]
  - Throat irritation [Unknown]
  - Eye pain [Unknown]
  - Gastrooesophageal reflux disease [Unknown]
  - Throat tightness [Unknown]
  - Eye irritation [Unknown]
  - Dry eye [Unknown]
  - Retching [Unknown]
  - Stress [Not Recovered/Not Resolved]
  - Visual impairment [Unknown]
  - Cardiac discomfort [Unknown]
  - Headache [Unknown]
  - Depressed mood [Not Recovered/Not Resolved]
  - Head discomfort [Unknown]
  - Eyelid margin crusting [Unknown]
  - Abdominal discomfort [Unknown]

NARRATIVE: CASE EVENT DATE: 202005
